FAERS Safety Report 4746080-5 (Version None)
Quarter: 2005Q3

REPORT INFORMATION
  Report Type: 
  Country: None (occurrence: None)
  Receive Date: 20050816
  Receipt Date: 20030122
  Transmission Date: 20060218
  Serious: Yes (Death)
  Sender: FDA-Public Use
  Company Number: 2005UW11873

PATIENT
  Age: 19489 Day
  Sex: Male
  Weight: 76 kg

DRUGS (4)
  1. ZD1839 [Suspect]
     Indication: NON-SMALL CELL LUNG CANCER
     Route: 048
     Dates: start: 20020325, end: 20021119
  2. GABAPENTIN [Concomitant]
     Indication: RADICULITIS
     Dates: start: 20020310
  3. PARACETAMOL [Concomitant]
     Indication: CHEST PAIN
     Dates: start: 20020320
  4. CODEINE [Concomitant]
     Indication: CHEST PAIN
     Dates: start: 20020320

REACTIONS (3)
  - LUNG DISORDER [None]
  - PNEUMONIA [None]
  - RESPIRATORY FAILURE [None]
